FAERS Safety Report 4789473-2 (Version None)
Quarter: 2005Q4

REPORT INFORMATION
  Report Type: 
  Country: None (occurrence: None)
  Receive Date: 20051004
  Receipt Date: 20051004
  Transmission Date: 20060501
  Serious: Yes (Hospitalization)
  Sender: FDA-Public Use
  Company Number: None

PATIENT
  Sex: Male

DRUGS (1)
  1. LEVAQUIN [Suspect]
     Indication: PNEUMONIA
     Dosage: 500MG DAILY PO
     Route: 048
     Dates: start: 20050408, end: 20050412

REACTIONS (7)
  - ABNORMAL FAECES [None]
  - CLOSTRIDIUM COLITIS [None]
  - DEHYDRATION [None]
  - DIARRHOEA [None]
  - FAECES DISCOLOURED [None]
  - FATIGUE [None]
  - VOMITING [None]
